FAERS Safety Report 8239965-9 (Version None)
Quarter: 2012Q1

REPORT INFORMATION
  Report Type: 
  Country: None (occurrence: None)
  Receive Date: 20120328
  Receipt Date: 20120314
  Transmission Date: 20120608
  Serious: Yes (Hospitalization)
  Sender: FDA-Public Use
  Company Number: DE-INCYTE CORPORATION-2012IN000439

PATIENT
  Sex: Female
  Weight: 60 kg

DRUGS (6)
  1. DICLOFENAC SODIUM [Concomitant]
     Dosage: UNK
     Dates: start: 20111118
  2. PANTOPRAZOLE [Concomitant]
     Dosage: UNK
     Dates: start: 20111118
  3. LAXOBERAL [Concomitant]
     Dosage: UNK
     Dates: start: 20111201
  4. TILIDIN [Concomitant]
     Dosage: UNK
     Dates: start: 20111118
  5. NOVALGIN [Concomitant]
     Dosage: UNK
     Dates: start: 20080304
  6. INC424 [Suspect]
     Indication: MYELOFIBROSIS
     Dosage: 5 MG, BID
     Route: 048
     Dates: start: 20111205, end: 20120312

REACTIONS (1)
  - RENAL INFARCT [None]
